FAERS Safety Report 24681840 (Version 2)
Quarter: 2024Q4

REPORT INFORMATION
  Report Type: Spontaneous
  Country: US (occurrence: US)
  Receive Date: 20241130
  Receipt Date: 20241228
  Transmission Date: 20250114
  Serious: No
  Sender: SANOFI AVENTIS
  Company Number: US-SA-2024SA350206

PATIENT
  Age: 25 Year
  Sex: Female

DRUGS (5)
  1. DUPIXENT [Suspect]
     Active Substance: DUPILUMAB
     Indication: Dermatitis atopic
     Dosage: 300 MG, QOW
     Route: 058
     Dates: start: 20240709
  2. FLUTICASONE [Concomitant]
     Active Substance: FLUTICASONE
  3. FLUTICASONE [Concomitant]
     Active Substance: FLUTICASONE
  4. RESTASIS [Concomitant]
     Active Substance: CYCLOSPORINE
  5. ZYRTEC [Concomitant]
     Active Substance: CETIRIZINE HYDROCHLORIDE

REACTIONS (1)
  - Conjunctivitis allergic [Unknown]

NARRATIVE: CASE EVENT DATE: 20241123
